FAERS Safety Report 16570679 (Version 1)
Quarter: 2019Q3

REPORT INFORMATION
  Report Type: Spontaneous
  Country: CN (occurrence: CN)
  Receive Date: 20190715
  Receipt Date: 20190715
  Transmission Date: 20191004
  Serious: Yes (Death, Hospitalization, Other)
  Sender: FDA-Public Use
  Company Number: CN-GLAXOSMITHKLINE-CN2019APC096566

PATIENT

DRUGS (9)
  1. CEFUROXIME SODIUM. [Suspect]
     Active Substance: CEFUROXIME SODIUM
     Indication: PHARYNGITIS
     Dosage: CEFUROXIME SODIUM 3.0 G
     Route: 042
  2. VITAMIN C [Concomitant]
     Active Substance: ASCORBIC ACID
     Indication: PHARYNGITIS
     Dosage: 2.0 G
     Route: 042
  3. SODIUM CHLORIDE. [Concomitant]
     Active Substance: SODIUM CHLORIDE
     Indication: PRODUCT USED FOR UNKNOWN INDICATION
     Dosage: UNK
  4. DEXAMETHASONE. [Concomitant]
     Active Substance: DEXAMETHASONE
     Indication: CHEST DISCOMFORT
  5. DEXAMETHASONE. [Concomitant]
     Active Substance: DEXAMETHASONE
     Indication: DYSPNOEA
     Dosage: INTRAVENOUS PUSH
     Route: 042
  6. METRONIDAZOLE. [Concomitant]
     Active Substance: METRONIDAZOLE
     Indication: PHARYNGITIS
     Dosage: UNK
     Route: 042
  7. CEFUROXIME SODIUM. [Suspect]
     Active Substance: CEFUROXIME SODIUM
     Dosage: APPROXIMATELY 30 ML
     Route: 042
  8. VITAMIN B6 [Concomitant]
     Active Substance: PYRIDOXINE HYDROCHLORIDE
     Indication: PHARYNGITIS
     Dosage: 0.2 G
     Route: 042
  9. DEXAMETHASONE. [Concomitant]
     Active Substance: DEXAMETHASONE
     Indication: PHARYNGITIS
     Dosage: DEXAMETHASONE 5 MG
     Route: 042

REACTIONS (11)
  - Dyspnoea [Unknown]
  - Visceral congestion [Fatal]
  - Brain oedema [Fatal]
  - Eosinophilia [Fatal]
  - Haemorrhage [Fatal]
  - Laryngeal inflammation [Fatal]
  - Anaphylactic shock [Fatal]
  - Pulmonary oedema [Fatal]
  - Chest discomfort [Unknown]
  - Oropharyngeal pain [Fatal]
  - Pulmonary congestion [Fatal]
